FAERS Safety Report 4870646-5 (Version None)
Quarter: 2005Q4

REPORT INFORMATION
  Report Type: 
  Country: None (occurrence: None)
  Receive Date: 20051228
  Receipt Date: 20051122
  Transmission Date: 20060501
  Serious: Yes (Hospitalization)
  Sender: FDA-Public Use
  Company Number: 2005US001874

PATIENT
  Age: 2 Year
  Sex: Female

DRUGS (1)
  1. PROTOPIC [Suspect]
     Dosage: BID, TOPICAL
     Route: 061
     Dates: start: 20051201

REACTIONS (2)
  - SOFT TISSUE INFECTION [None]
  - SUBCUTANEOUS ABSCESS [None]
